FAERS Safety Report 9220665 (Version 3)
Quarter: 2013Q2

REPORT INFORMATION
  Report Type: Spontaneous
  Country: SK (occurrence: SK)
  Receive Date: 20130409
  Receipt Date: 20130423
  Transmission Date: 20140414
  Serious: Yes (Other)
  Sender: FDA-Public Use
  Company Number: SK-PFIZER INC-2013108316

PATIENT
  Age: 61 Year
  Sex: Male

DRUGS (2)
  1. SUNITINIB MALATE [Suspect]
     Indication: RENAL CANCER
     Dosage: 50 MG, 4WEEKS THERAPY, 2 WEEKS PAUSE
     Dates: start: 20110816
  2. SUNITINIB MALATE [Suspect]
     Dosage: UNK
     Dates: start: 201202, end: 201207

REACTIONS (8)
  - Second primary malignancy [Unknown]
  - Neoplasm of orbit [Unknown]
  - Retinal detachment [Unknown]
  - Atrial flutter [Unknown]
  - Skin disorder [Unknown]
  - Diarrhoea [Unknown]
  - Hypertension [Unknown]
  - Thyroid disorder [Unknown]
